FAERS Safety Report 6745107-9 (Version None)
Quarter: 2010Q2

REPORT INFORMATION
  Report Type: 
  Country: None (occurrence: None)
  Receive Date: 20100527
  Receipt Date: 20100517
  Transmission Date: 20101027
  Serious: Yes (Other)
  Sender: FDA-Public Use
  Company Number: US-WATSON-2010-06866

PATIENT
  Age: 48 Year
  Sex: Female

DRUGS (19)
  1. HYDROXYCHLOROQUINE SULFATE (WATSON LABORATORIES) [Suspect]
     Indication: BEHCET'S SYNDROME
     Dosage: 200 MG, BID
     Route: 048
     Dates: start: 20020601
  2. HYDROXYCHLOROQUINE SULFATE (WATSON LABORATORIES) [Suspect]
     Dosage: 300 MG, BID
     Route: 048
     Dates: start: 19990701, end: 20020501
  3. COLCHICINE (WATSON LABORATORIES) [Suspect]
     Indication: BEHCET'S SYNDROME
     Dosage: 6 MG, BID
     Route: 048
     Dates: start: 20040801
  4. COLCHICINE (WATSON LABORATORIES) [Suspect]
     Dosage: 6 MG, BID
     Route: 048
     Dates: start: 19991001, end: 20021201
  5. PREDNISONE TAB [Suspect]
     Indication: BEHCET'S SYNDROME
     Dosage: 10 MG QD OCCASIONAL PULSE
  6. CYCLOSPORINE [Suspect]
     Indication: PROPHYLAXIS AGAINST TRANSPLANT REJECTION
     Dosage: UNK
     Dates: start: 20000501, end: 20010601
  7. CYCLOPHOSPHAMIDE [Suspect]
  8. LEFLUNOMIDE [Suspect]
     Indication: BEHCET'S SYNDROME
     Dosage: 20 MG, DAILY
     Dates: start: 20070601
  9. METHOTREXATE [Suspect]
     Indication: BEHCET'S SYNDROME
     Dosage: 7.5 TO 20 MG WEEKLY
     Dates: start: 19981001, end: 19990701
  10. DAPSONE [Suspect]
     Indication: BEHCET'S SYNDROME
     Dosage: 50 MG DAILY
     Dates: start: 20030601, end: 20050901
  11. DAPSONE [Suspect]
     Dosage: 100 MG DAILY
     Dates: start: 19990901, end: 20000501
  12. MYCOPHENOLATE MOFETIL [Suspect]
     Indication: BEHCET'S SYNDROME
     Dosage: 1000 MG BID
     Dates: start: 20001201, end: 20010901
  13. CHLORAMBUCIL [Suspect]
     Indication: BEHCET'S SYNDROME
     Dosage: 3-4 MG DAILY
     Dates: start: 20011101, end: 20020901
  14. ETANERCEPT [Suspect]
     Indication: BEHCET'S SYNDROME
     Dosage: 25 MG TWICE WEEKLY
     Dates: start: 20040901, end: 20050201
  15. AZATHIOPRINE SODIUM [Suspect]
     Indication: BEHCET'S SYNDROME
     Dosage: 150 MG DAILY
     Dates: start: 20070101, end: 20070301
  16. AZATHIOPRINE SODIUM [Suspect]
     Dosage: 150 MG DAILY
     Dates: start: 20050201, end: 20050401
  17. INFLIXIMAB [Suspect]
     Indication: BEHCET'S SYNDROME
     Dosage: 200 TO 400 MG
     Route: 042
     Dates: start: 20050401, end: 20060201
  18. RITUXIMAB [Suspect]
     Indication: BEHCET'S SYNDROME
     Dosage: 1000 MG
     Route: 042
     Dates: start: 20060507
  19. RITUXIMAB [Suspect]
     Dosage: 1000 MG
     Route: 042
     Dates: start: 20060601

REACTIONS (1)
  - SQUAMOUS CELL CARCINOMA [None]
